FAERS Safety Report 19390748 (Version 1)
Quarter: 2021Q2

REPORT INFORMATION
  Report Type: Spontaneous
  Country: US (occurrence: US)
  Receive Date: 20210608
  Receipt Date: 20210608
  Transmission Date: 20210717
  Serious: Yes (Hospitalization, Other)
  Sender: FDA-Public Use
  Company Number: US-TERSERA THERAPEUTICS LLC-2021TRS002644

PATIENT

DRUGS (2)
  1. BACLOFEN. [Suspect]
     Active Substance: BACLOFEN
     Indication: PAIN
     Dosage: UNK
     Route: 037
  2. ZICONOTIDE [Suspect]
     Active Substance: ZICONOTIDE
     Indication: PAIN
     Dosage: UNK
     Route: 037

REACTIONS (3)
  - Encephalopathy [Recovering/Resolving]
  - Toxicity to various agents [Recovering/Resolving]
  - Off label use [Unknown]
